FAERS Safety Report 14035255 (Version 1)
Quarter: 2017Q4

REPORT INFORMATION
  Report Type: Spontaneous
  Country: BE (occurrence: BE)
  Receive Date: 20171003
  Receipt Date: 20171003
  Transmission Date: 20180321
  Serious: Yes (Other)
  Sender: FDA-Public Use
  Company Number: BE-PFIZER INC-3049104

PATIENT
  Age: 75 Year
  Sex: Male

DRUGS (3)
  1. 5-FLUOROURACIL /00098801/ [Concomitant]
     Active Substance: FLUOROURACIL
     Indication: COLORECTAL CANCER METASTATIC
     Dosage: 85 MG/M2, CYCLIC
  2. FOLINIC ACID [Concomitant]
     Active Substance: LEUCOVORIN
     Indication: COLORECTAL CANCER METASTATIC
     Dosage: 85 MG/M2, CYCLIC
  3. OXALIPLATIN. [Suspect]
     Active Substance: OXALIPLATIN
     Indication: COLORECTAL CANCER METASTATIC
     Dosage: 85 MG/M2, CYCLIC

REACTIONS (7)
  - Polyneuropathy [Recovering/Resolving]
  - Neurotoxicity [Unknown]
  - Neuropathy peripheral [Unknown]
  - Intestinal pseudo-obstruction [Recovering/Resolving]
  - Toxic neuropathy [Recovering/Resolving]
  - Autonomic neuropathy [Recovering/Resolving]
  - Venoocclusive liver disease [Unknown]
